FAERS Safety Report 18285001 (Version 1)
Quarter: 2020Q3

REPORT INFORMATION
  Report Type: Spontaneous
  Country: US (occurrence: US)
  Receive Date: 20200918
  Receipt Date: 20200918
  Transmission Date: 20201103
  Serious: No
  Sender: FDA-Public Use
  Company Number: US-MYLANLABS-2020M1078926

PATIENT
  Sex: Female

DRUGS (4)
  1. IRBESARTAN. [Concomitant]
     Active Substance: IRBESARTAN
     Dosage: UNK
  2. CARAFATE [Concomitant]
     Active Substance: SUCRALFATE
     Dosage: UNK
  3. POTASSIUM [Concomitant]
     Active Substance: POTASSIUM
     Dosage: UNK
  4. LANSOPRAZOLE DELAYED?RELEASE CAPSULES, USP [Suspect]
     Active Substance: LANSOPRAZOLE
     Indication: GASTROOESOPHAGEAL REFLUX DISEASE
     Dosage: 30 MILLIGRAM, QD (1 CAPSULE A DAY)
     Route: 048

REACTIONS (2)
  - Abdominal distension [Not Recovered/Not Resolved]
  - Abdominal pain upper [Not Recovered/Not Resolved]
